FAERS Safety Report 4598623-2 (Version None)
Quarter: 2005Q1

REPORT INFORMATION
  Report Type: 
  Country: None (occurrence: None)
  Receive Date: 20050303
  Receipt Date: 20050303
  Transmission Date: 20050727
  Serious: Yes (Death, Hospitalization)
  Sender: FDA-Public Use
  Company Number: None

PATIENT
  Sex: Female
  Weight: 70.7611 kg

DRUGS (2)
  1. IRINOTECAN HCL [Suspect]
     Indication: SMALL CELL LUNG CANCER STAGE UNSPECIFIED
     Dosage: 50 MG/M2 IV
     Route: 042
     Dates: start: 20050120
  2. CARBOPLATIN [Suspect]
     Indication: SMALL CELL LUNG CANCER STAGE UNSPECIFIED
     Dosage: AUC 5 IV
     Route: 042
     Dates: start: 20050113

REACTIONS (3)
  - DEHYDRATION [None]
  - DISEASE PROGRESSION [None]
  - PNEUMONIA [None]
